FAERS Safety Report 8026568 (Version 6)
Quarter: 2012Q4

REPORT INFORMATION
  Report Type: 
  Country: US (occurrence: US)
  Receive Date: 20110708
  Receipt Date: 20121031
  Transmission Date: 20130627
  Serious: Yes (Hospitalization, Other)
  Sender: FDA-Public Use
  Company Number: US-ROCHE-787494

PATIENT
  Age: 29 Year
  Sex: Female

DRUGS (4)
  1. ACCUTANE [Suspect]
     Indication: ACNE
     Route: 048
     Dates: start: 20000614, end: 20000714
  2. ACCUTANE [Suspect]
     Route: 048
     Dates: start: 20000822, end: 20010823
  3. ACCUTANE [Suspect]
     Route: 065
     Dates: start: 20000717, end: 20000816
  4. ETHINYL ESTRADIOL/NORGESTIMATE [Concomitant]
     Indication: PRODUCT USED FOR UNKNOWN INDICATION

REACTIONS (7)
  - Injury [Unknown]
  - Colitis ulcerative [Unknown]
  - Inflammatory bowel disease [Unknown]
  - Crohn^s disease [Unknown]
  - Depression [Unknown]
  - Lip dry [Unknown]
  - Haemorrhoids [Unknown]
